FAERS Safety Report 6336583-4 (Version None)
Quarter: 2009Q3

REPORT INFORMATION
  Report Type: 
  Country: None (occurrence: None)
  Receive Date: 20090901
  Receipt Date: 20090826
  Transmission Date: 20100115
  Serious: Yes (Other)
  Sender: FDA-Public Use
  Company Number: GB-GILEAD-2009-0023160

PATIENT
  Age: 4 Decade
  Sex: Male

DRUGS (3)
  1. TRUVADA [Suspect]
     Indication: DRUG USE FOR UNKNOWN INDICATION
     Dates: start: 20080101
  2. KIVEXA [Concomitant]
     Dates: start: 20051001, end: 20080101
  3. REYATAZ [Concomitant]
     Dates: start: 20051001

REACTIONS (3)
  - CHOLELITHIASIS [None]
  - GASTROINTESTINAL PAIN [None]
  - JAUNDICE [None]
